FAERS Safety Report 9367125 (Version 1)
Quarter: 2013Q2

REPORT INFORMATION
  Report Type: Spontaneous
  Country: GB (occurrence: GB)
  Receive Date: 20130625
  Receipt Date: 20130625
  Transmission Date: 20140414
  Serious: Yes (Other)
  Sender: FDA-Public Use
  Company Number: GB-TEVA-413507ISR

PATIENT
  Age: 3 Year
  Sex: Female
  Weight: 7.8 kg

DRUGS (4)
  1. ERYTHROMYCIN [Suspect]
     Dates: start: 20130419
  2. SALBUTAMOL [Concomitant]
     Dates: start: 20130411, end: 20130509
  3. CHLORPHENAMINE [Concomitant]
     Dates: start: 20130422, end: 20130529
  4. AMOXICILLIN [Concomitant]
     Dates: start: 20130517, end: 20130524

REACTIONS (1)
  - Onychomadesis [Recovering/Resolving]
